FAERS Safety Report 25268555 (Version 1)
Quarter: 2025Q2

REPORT INFORMATION
  Report Type: Spontaneous
  Country: US (occurrence: None)
  Receive Date: 20250503
  Receipt Date: 20250503
  Transmission Date: 20250717
  Serious: Yes (Life-Threatening, Hospitalization, Disabling, Other)
  Sender: FDA-CTU
  Company Number: None

PATIENT
  Age: 45 Year
  Sex: Female
  Weight: 85.05 kg

DRUGS (2)
  1. CLOBETASOL PROPIONATE [Suspect]
     Active Substance: CLOBETASOL PROPIONATE
     Indication: Product used for unknown indication
     Dosage: 1 TUBES TWICE A DAY TOPICAL ?
     Route: 061
  2. VITAMIN D3 [Concomitant]
     Active Substance: CHOLECALCIFEROL

REACTIONS (16)
  - Immune system disorder [None]
  - Nail atrophy [None]
  - Asthenia [None]
  - Dysphagia [None]
  - Skin hyperpigmentation [None]
  - Skin exfoliation [None]
  - Pruritus [None]
  - Quality of life decreased [None]
  - Alopecia [None]
  - Tooth loss [None]
  - Depression [None]
  - Fibromyalgia [None]
  - Rheumatoid arthritis [None]
  - Brain fog [None]
  - Vitamin D deficiency [None]
  - Adrenal disorder [None]

NARRATIVE: CASE EVENT DATE: 20220812
